FAERS Safety Report 11552162 (Version 1)
Quarter: 2015Q3

REPORT INFORMATION
  Report Type: Other
  Country: IT (occurrence: IT)
  Receive Date: 20150925
  Receipt Date: 20150925
  Transmission Date: 20151125
  Serious: Yes (Other)
  Sender: FDA-Public Use
  Company Number: IT-SUN PHARMACEUTICAL INDUSTRIES LTD-2013SUN00293

PATIENT

DRUGS (7)
  1. STILNOX [Concomitant]
     Active Substance: ZOLPIDEM TARTRATE
  2. NEBIVOLOL HYDROCHLORIDE [Concomitant]
     Active Substance: NEBIVOLOL HYDROCHLORIDE
  3. GRANISETRON HYDROCHLORIDE. [Concomitant]
     Active Substance: GRANISETRON HYDROCHLORIDE
  4. OXALIPLATIN. [Suspect]
     Active Substance: OXALIPLATIN
     Indication: COLON CANCER
     Dosage: 140 MG, CYCLIC
     Route: 042
     Dates: start: 20120712, end: 20120712
  5. GASTROLOC [Concomitant]
  6. MANIDIPINE HYDROCHLORIDE [Concomitant]
     Active Substance: MANIDIPINE HYDROCHLORIDE
  7. DEXAMETHASONE PHOSPHATE [Concomitant]
     Active Substance: DEXAMETHASONE PHOSPHATE

REACTIONS (3)
  - Bronchospasm [Recovered/Resolved]
  - Laryngospasm [Recovered/Resolved]
  - Dyspnoea [Recovered/Resolved]

NARRATIVE: CASE EVENT DATE: 20120712
